FAERS Safety Report 6896121-4 (Version None)
Quarter: 2010Q3

REPORT INFORMATION
  Report Type: 
  Country: None (occurrence: None)
  Receive Date: 20100802
  Receipt Date: 20100721
  Transmission Date: 20110219
  Serious: Yes (Death)
  Sender: FDA-Public Use
  Company Number: A0865095A

PATIENT
  Age: 61 Year
  Sex: Female

DRUGS (1)
  1. AVANDIA [Suspect]
     Dosage: 8MG PER DAY
     Dates: start: 20030901, end: 20050801

REACTIONS (4)
  - BLINDNESS [None]
  - DEATH [None]
  - MACULAR OEDEMA [None]
  - MYOCARDIAL INFARCTION [None]
